FAERS Safety Report 4726969-3 (Version None)
Quarter: 2005Q3

REPORT INFORMATION
  Report Type: 
  Country: None (occurrence: None)
  Receive Date: 20050726
  Receipt Date: 20050712
  Transmission Date: 20060218
  Serious: Yes (Hospitalization)
  Sender: FDA-Public Use
  Company Number: 215583

PATIENT
  Age: 68 Year
  Sex: Female
  Weight: 46 kg

DRUGS (8)
  1. AVASTIN [Suspect]
     Indication: METASTATIC GASTRIC CANCER
     Dosage: 5 MG/KG, DAYS 1 + 15, INTRAVENOUS
     Route: 042
     Dates: start: 20050323, end: 20050608
  2. DOCETAXEL (DOCETAXEL) [Suspect]
     Indication: METASTATIC GASTRIC CANCER
     Dosage: 30 MG/M2, DAYS 1,8,15, INTRAVENOUS
     Route: 042
     Dates: start: 20050323, end: 20050608
  3. ANUSOL-HC (HYDROCHORTISONE ACETATE) [Concomitant]
  4. DECADRON [Concomitant]
  5. MEGACE [Concomitant]
  6. METFORMIN HCL [Concomitant]
  7. MOTRIN [Concomitant]
  8. NIFEREX (POLYSACCHARIDE-IRON COMPLEX) [Concomitant]

REACTIONS (29)
  - ALPHA HAEMOLYTIC STREPTOCOCCAL INFECTION [None]
  - ANAL FISTULA [None]
  - ANION GAP INCREASED [None]
  - ASTHENIA [None]
  - BACTEROIDES INFECTION [None]
  - BLOOD BICARBONATE DECREASED [None]
  - BODY TEMPERATURE INCREASED [None]
  - CARDIAC FAILURE CONGESTIVE [None]
  - CONFUSIONAL STATE [None]
  - CULTURE WOUND POSITIVE [None]
  - DIARRHOEA [None]
  - ESCHERICHIA INFECTION [None]
  - FLATULENCE [None]
  - GASTROINTESTINAL HAEMORRHAGE [None]
  - HAEMATOCRIT DECREASED [None]
  - HAEMOGLOBIN DECREASED [None]
  - HEART RATE INCREASED [None]
  - LETHARGY [None]
  - NECROSIS [None]
  - OCCULT BLOOD POSITIVE [None]
  - OEDEMA PERIPHERAL [None]
  - PERICARDIAL EFFUSION [None]
  - PERIRECTAL ABSCESS [None]
  - PLATELET COUNT DECREASED [None]
  - PLEURAL EFFUSION [None]
  - PROCTALGIA [None]
  - PSEUDOMONAS INFECTION [None]
  - RENAL TUBULAR ACIDOSIS [None]
  - URINE OUTPUT DECREASED [None]
